FAERS Safety Report 17857995 (Version 2)
Quarter: 2020Q2

REPORT INFORMATION
  Report Type: Spontaneous
  Country: JP (occurrence: JP)
  Receive Date: 20200604
  Receipt Date: 20200612
  Transmission Date: 20200714
  Serious: Yes (Other)
  Sender: FDA-Public Use
  Company Number: JP-TEVA-2020-JP-1242095

PATIENT
  Age: 92 Year
  Sex: Female

DRUGS (3)
  1. FOLINIC ACID [Suspect]
     Active Substance: LEUCOVORIN
     Indication: METASTASES TO LIVER
     Dosage: 75 MILLIGRAM DAILY; FOR 4 WEEKS WITH 1 WEEK WASHOUT PERIOD AND LATER FOR 3 WEEKS WITH 1 WEEK WASHOUT
     Route: 048
  2. UFT [Suspect]
     Active Substance: TEGAFUR\URACIL
     Indication: METASTASES TO LIVER
     Dosage: 300 MILLIGRAM DAILY; FOR 4 WEEKS WITH 1 WEEK WASHOUT PERIOD AND LATER FOR 3 WEEKS WITH 1 WEEK WASHOU
     Route: 048
  3. BEVACIZUMAB. [Suspect]
     Active Substance: BEVACIZUMAB
     Indication: METASTASES TO LIVER
     Dosage: ON DAY 1
     Route: 048

REACTIONS (3)
  - Neutropenia [Unknown]
  - Proteinuria [Unknown]
  - Malaise [Unknown]
